FAERS Safety Report 8566782-2 (Version None)
Quarter: 2012Q3

REPORT INFORMATION
  Report Type: 
  Country: None (occurrence: None)
  Receive Date: 20120803
  Receipt Date: 20111025
  Transmission Date: 20120928
  Serious: No
  Sender: FDA-Public Use
  Company Number: US-ABBOTT-11P-163-0867864-00

PATIENT
  Sex: Male
  Weight: 81.72 kg

DRUGS (3)
  1. NIASPAN [Suspect]
     Indication: PRODUCT USED FOR UNKNOWN INDICATION
  2. BLOOD PRESSSURE MEDICATION [Concomitant]
     Indication: BLOOD PRESSURE
  3. DIABETES MEDICIATION [Concomitant]
     Indication: DIABETES MELLITUS

REACTIONS (1)
  - FLUSHING [None]
